FAERS Safety Report 20828866 (Version 1)
Quarter: 2022Q2

REPORT INFORMATION
  Report Type: Spontaneous
  Country: FR (occurrence: FR)
  Receive Date: 20220513
  Receipt Date: 20220513
  Transmission Date: 20220721
  Serious: Yes (Hospitalization, Other)
  Sender: FDA-Public Use
  Company Number: None

PATIENT
  Age: 57 Year
  Sex: Male

DRUGS (4)
  1. ADCETRIS [Suspect]
     Active Substance: BRENTUXIMAB VEDOTIN
     Indication: T-cell lymphoma
     Dosage: UNK
     Route: 042
     Dates: start: 20220323, end: 20220323
  2. PREDNISOLONE [Concomitant]
     Active Substance: PREDNISOLONE
     Indication: T-cell lymphoma
     Dosage: UNK
     Route: 048
     Dates: start: 20220415, end: 20220420
  3. ETOPOSIDE [Concomitant]
     Active Substance: ETOPOSIDE
     Indication: T-cell lymphoma
     Dosage: UNK
     Route: 042
     Dates: start: 20220415, end: 20220420
  4. BENDAMUSTINE [Concomitant]
     Active Substance: BENDAMUSTINE
     Indication: T-cell lymphoma
     Dosage: UNK
     Route: 042
     Dates: start: 20220323, end: 20220323

REACTIONS (1)
  - Pancreatitis [Not Recovered/Not Resolved]

NARRATIVE: CASE EVENT DATE: 20220420
